FAERS Safety Report 4372277-2 (Version None)
Quarter: 2004Q2

REPORT INFORMATION
  Report Type: 
  Country: None (occurrence: None)
  Receive Date: 20040602
  Receipt Date: 20040520
  Transmission Date: 20050107
  Serious: Yes (Life-Threatening, Hospitalization)
  Sender: FDA-Public Use
  Company Number: 2004215144GB

PATIENT
  Age: 66 Year
  Sex: Female
  Weight: 67 kg

DRUGS (9)
  1. DOXORUBICIN HCL [Suspect]
     Indication: BREAST CANCER
     Dosage: SEE IMAGE
     Route: 040
     Dates: start: 20031231
  2. DOXORUBICIN HCL [Suspect]
     Indication: BREAST CANCER
     Dosage: SEE IMAGE
     Route: 040
     Dates: start: 20040225
  3. CYCLOPHOSPHAMIDE [Suspect]
     Indication: BREAST CANCER
     Dosage: SEE IMAGE
     Route: 040
     Dates: start: 20031231
  4. CYCLOPHOSPHAMIDE [Suspect]
     Indication: BREAST CANCER
     Dosage: SEE IMAGE
     Route: 040
     Dates: start: 20040225
  5. HYPERICUM PERFORATUM (HYPERICUM PERFORATUM) [Suspect]
  6. MST CONTINUS [Concomitant]
  7. ROFECOXIB [Concomitant]
  8. LANSOPRAZOLE [Concomitant]
  9. CYCLIZINE (CYCLIZINE) [Concomitant]

REACTIONS (2)
  - LEUKOPENIA [None]
  - NEUTROPENIC SEPSIS [None]
